FAERS Safety Report 13014643 (Version 1)
Quarter: 2016Q4

REPORT INFORMATION
  Report Type: Spontaneous
  Country: US (occurrence: US)
  Receive Date: 20161209
  Receipt Date: 20161209
  Transmission Date: 20170207
  Serious: No
  Sender: FDA-Public Use
  Company Number: US-PFIZER INC-2016561879

PATIENT
  Sex: Female

DRUGS (1)
  1. ADVIL MENSTRUAL PAIN [Suspect]
     Active Substance: IBUPROFEN SODIUM
     Indication: MUSCLE SPASMS
     Dosage: UNK
     Route: 048

REACTIONS (2)
  - Dysgeusia [Unknown]
  - Drug effect incomplete [Unknown]
